FAERS Safety Report 4264989-6 (Version None)
Quarter: 2004Q1

REPORT INFORMATION
  Report Type: 
  Country: None (occurrence: None)
  Receive Date: 20040106
  Receipt Date: 20031121
  Transmission Date: 20041129
  Serious: Yes (Life-Threatening, Hospitalization)
  Sender: FDA-Public Use
  Company Number: WAES 0311USA02793

PATIENT
  Age: 84 Year
  Sex: Male

DRUGS (3)
  1. FOSAMAX [Suspect]
     Route: 048
     Dates: start: 20011023, end: 20031110
  2. ALFAROL [Concomitant]
     Route: 048
     Dates: start: 20011023
  3. ELCITONIN [Concomitant]
     Route: 030
     Dates: start: 20030218

REACTIONS (3)
  - ANAEMIA [None]
  - CONSTIPATION [None]
  - GASTRIC ULCER HAEMORRHAGE [None]
